FAERS Safety Report 8602956 (Version 2)
Quarter: 2013Q3

REPORT INFORMATION
  Report Type: Report from Study
  Country: MX (occurrence: MX)
  Receive Date: 20120607
  Receipt Date: 20130813
  Transmission Date: 20140515
  Serious: Yes (Hospitalization)
  Sender: FDA-Public Use
  Company Number: PHHY2012MX034871

PATIENT
  Age: 62 Year
  Sex: Female

DRUGS (4)
  1. CO-DIOVAN [Suspect]
     Indication: HYPERTENSION
     Dosage: 1 DF (80/12.5MG), DAILY
     Route: 048
     Dates: start: 20120428, end: 20120525
  2. CERVILANE [Concomitant]
     Dosage: 1 DF, DAILY
  3. CINNARIZINE [Concomitant]
     Indication: DIZZINESS
     Dosage: 1 DF, DAILY
  4. CINNARIZINE [Concomitant]
     Indication: NERVOUS SYSTEM DISORDER

REACTIONS (2)
  - Salmonellosis [Unknown]
  - Drug ineffective [Unknown]
